FAERS Safety Report 7592497-3 (Version None)
Quarter: 2011Q3

REPORT INFORMATION
  Report Type: 
  Country: None (occurrence: None)
  Receive Date: 20110706
  Receipt Date: 20110624
  Transmission Date: 20111222
  Serious: Yes (Hospitalization, Other)
  Sender: FDA-Public Use
  Company Number: US-BAYER-2011-023838

PATIENT
  Sex: Female
  Weight: 113.38 kg

DRUGS (10)
  1. YASMIN [Suspect]
     Indication: ORAL CONTRACEPTION
     Dosage: UNK
     Dates: start: 20050101, end: 20060101
  2. MYLANTA [Concomitant]
     Indication: GASTROOESOPHAGEAL REFLUX DISEASE
     Dosage: UNK
     Dates: start: 20090101, end: 20100101
  3. ENZYME PREPARATIONS [Concomitant]
     Indication: UNEVALUABLE EVENT
     Dosage: UNK
     Dates: start: 20100101, end: 20100101
  4. YASMIN [Suspect]
     Indication: DYSMENORRHOEA
  5. ANTIBIOTICS [Concomitant]
  6. ADVIL LIQUI-GELS [Concomitant]
     Dosage: UNK
     Dates: start: 19950101, end: 20100101
  7. NEXIUM [Concomitant]
     Indication: GASTROOESOPHAGEAL REFLUX DISEASE
     Dosage: UNK
     Dates: start: 20080101
  8. IBUPROFEN [Concomitant]
     Dosage: UNK
     Dates: start: 19950101, end: 20100101
  9. ASCORBIC ACID [Concomitant]
     Dosage: UNK
     Dates: start: 20000101, end: 20100101
  10. TYLENOL-500 [Concomitant]
     Indication: PAIN
     Dosage: UNK
     Dates: start: 19950101, end: 20100101

REACTIONS (5)
  - CHOLECYSTITIS CHRONIC [None]
  - INJURY [None]
  - GENERAL PHYSICAL HEALTH DETERIORATION [None]
  - GALLBLADDER DISORDER [None]
  - PAIN [None]
